FAERS Safety Report 6846026-X (Version None)
Quarter: 2010Q3

REPORT INFORMATION
  Report Type: 
  Country: None (occurrence: None)
  Receive Date: 20100715
  Receipt Date: 20070929
  Transmission Date: 20110219
  Serious: No
  Sender: FDA-Public Use
  Company Number: US-PFIZER INC-2007073049

PATIENT
  Sex: Female
  Weight: 86.4 kg

DRUGS (8)
  1. CHANTIX [Suspect]
     Indication: SMOKING CESSATION THERAPY
     Route: 048
     Dates: start: 20070801
  2. PLAVIX [Concomitant]
  3. HYDROCODONE [Concomitant]
  4. BENICAR [Concomitant]
  5. LIPITOR [Concomitant]
  6. RESTORIL [Concomitant]
  7. VALIUM [Concomitant]
  8. NICORETTE [Concomitant]

REACTIONS (2)
  - ABNORMAL DREAMS [None]
  - NAUSEA [None]
